FAERS Safety Report 10527343 (Version 1)
Quarter: 2014Q4

REPORT INFORMATION
  Report Type: Spontaneous
  Country: GB (occurrence: None)
  Receive Date: 20141016
  Receipt Date: 20141016
  Transmission Date: 20150528
  Serious: Yes (Disabling)
  Sender: FDA-Public Use
  Company Number: None

PATIENT
  Age: 31 Year
  Sex: Male
  Weight: 75 kg

DRUGS (1)
  1. CIPROFLOXACIN. [Suspect]
     Active Substance: CIPROFLOXACIN
     Indication: EPIDIDYMITIS
     Dosage: 1 500 MG PILL TWICE DAILY TAKEN BY MOUTH
     Route: 048
     Dates: start: 20141003, end: 20141009

REACTIONS (4)
  - Anxiety [None]
  - Dizziness [None]
  - Balance disorder [None]
  - Tendonitis [None]

NARRATIVE: CASE EVENT DATE: 20141014
